FAERS Safety Report 5076238-X (Version None)
Quarter: 2006Q3

REPORT INFORMATION
  Report Type: 
  Country: None (occurrence: None)
  Receive Date: 20060804
  Receipt Date: 20060728
  Transmission Date: 20061208
  Serious: Yes (Life-Threatening)
  Sender: FDA-Public Use
  Company Number: AU-2006-018185

PATIENT
  Age: 50 Year
  Sex: Female

DRUGS (2)
  1. BETAFERON (INTERFERON BETA - 1B) INJECTION, 250UG [Suspect]
     Indication: MULTIPLE SCLEROSIS
     Dosage: 6 MIU, SUBCUTANEOUS
     Route: 058
     Dates: start: 20050301
  2. VITAMIN B12 INJECTION [Concomitant]

REACTIONS (2)
  - MULTIPLE MYELOMA [None]
  - PATHOLOGICAL FRACTURE [None]
